FAERS Safety Report 4991214-0 (Version None)
Quarter: 2006Q2

REPORT INFORMATION
  Report Type: 
  Country: None (occurrence: None)
  Receive Date: 20060504
  Receipt Date: 20051103
  Transmission Date: 20061013
  Serious: Yes (Hospitalization, Disabling)
  Sender: FDA-Public Use
  Company Number: US-ROCHE-423641

PATIENT
  Age: 22 Year
  Sex: Male
  Weight: 85.3 kg

DRUGS (1)
  1. ACCUTANE [Suspect]
     Indication: DRUG USE FOR UNKNOWN INDICATION
     Route: 048
     Dates: start: 19820615, end: 19830615

REACTIONS (25)
  - ANHEDONIA [None]
  - ANXIETY [None]
  - COLITIS [None]
  - COLITIS ULCERATIVE [None]
  - CROHN'S DISEASE [None]
  - DEPRESSION [None]
  - DRUG DEPENDENCE [None]
  - ELECTROCARDIOGRAM CHANGE [None]
  - EMOTIONAL DISTRESS [None]
  - ENDOCARDITIS [None]
  - FLIGHT OF IDEAS [None]
  - GASTROINTESTINAL DISORDER [None]
  - GASTROOESOPHAGEAL REFLUX DISEASE [None]
  - HALLUCINATION [None]
  - INFLAMMATORY BOWEL DISEASE [None]
  - INSOMNIA [None]
  - INTESTINAL HAEMORRHAGE [None]
  - IRRITABILITY [None]
  - OSTEOARTHRITIS [None]
  - OSTEOPENIA [None]
  - PSYCHOTIC DISORDER [None]
  - RAYNAUD'S PHENOMENON [None]
  - RESTLESSNESS [None]
  - SEPSIS [None]
  - SLEEP DISORDER [None]
